FAERS Safety Report 8759948 (Version 1)
Quarter: 2012Q4

REPORT INFORMATION
  Report Type: Report from Study
  Country: GR (occurrence: GR)
  Receive Date: 20120829
  Receipt Date: 20120829
  Transmission Date: 20130627
  Serious: Yes (Life-Threatening)
  Sender: FDA-Public Use
  Company Number: GR-GLAXOSMITHKLINE-B0569756C

PATIENT
  Age: 79 Year
  Sex: Female
  Weight: 65 kg

DRUGS (6)
  1. MELPHALAN [Suspect]
     Indication: MULTIPLE MYELOMA
     Dosage: 16MG Per day
     Route: 065
     Dates: start: 20090128, end: 20090507
  2. THALIDOMIDE [Suspect]
     Indication: MULTIPLE MYELOMA
     Dosage: 100MG Per day
     Route: 048
     Dates: start: 20090128
  3. PREDNISONE [Suspect]
     Indication: MULTIPLE MYELOMA
     Dosage: 155MG Per day
     Route: 065
     Dates: start: 20090128, end: 20090507
  4. DEXAMETHASONE [Concomitant]
     Indication: MYELOMA RECURRENCE
  5. BORTEZOMIB [Concomitant]
     Indication: MYELOMA RECURRENCE
  6. PANOBINOSTAT [Concomitant]
     Indication: MYELOMA RECURRENCE
     Route: 065

REACTIONS (1)
  - Endometrial cancer [Not Recovered/Not Resolved]
